FAERS Safety Report 10222085 (Version 1)
Quarter: 2014Q2

REPORT INFORMATION
  Report Type: Spontaneous
  Country: UA (occurrence: UA)
  Receive Date: 20140606
  Receipt Date: 20140606
  Transmission Date: 20141212
  Serious: No
  Sender: FDA-Public Use
  Company Number: UA-BIOMARINAP-UA-2014-102953

PATIENT
  Sex: Female

DRUGS (1)
  1. NAGLAZYME [Suspect]
     Indication: MUCOPOLYSACCHARIDOSIS VI
     Dosage: 15 MG, QW
     Route: 041
     Dates: start: 20140320

REACTIONS (4)
  - Toothache [Recovered/Resolved]
  - Gingival swelling [Recovered/Resolved]
  - Localised oedema [Recovered/Resolved]
  - Pyrexia [Recovered/Resolved]
